FAERS Safety Report 16566008 (Version 1)
Quarter: 2019Q3

REPORT INFORMATION
  Report Type: Spontaneous
  Country: US (occurrence: US)
  Receive Date: 20190712
  Receipt Date: 20190712
  Transmission Date: 20191004
  Serious: Yes (Other)
  Sender: FDA-Public Use
  Company Number: US-SA-2019SA189230

PATIENT
  Sex: Female

DRUGS (3)
  1. REPATHA [Concomitant]
     Active Substance: EVOLOCUMAB
  2. PRALUENT [Suspect]
     Active Substance: ALIROCUMAB
     Indication: TYPE IIA HYPERLIPIDAEMIA
     Dosage: 75 MG, QOW
     Route: 058
  3. PRALUENT [Suspect]
     Active Substance: ALIROCUMAB
     Dosage: 75 MG, QOW
     Route: 058

REACTIONS (5)
  - Gastrooesophageal reflux disease [Not Recovered/Not Resolved]
  - Arthralgia [Not Recovered/Not Resolved]
  - Malaise [Not Recovered/Not Resolved]
  - Gastric ulcer [Not Recovered/Not Resolved]
  - Pain [Not Recovered/Not Resolved]

NARRATIVE: CASE EVENT DATE: 2019
